FAERS Safety Report 7912483-0 (Version None)
Quarter: 2011Q4

REPORT INFORMATION
  Report Type: 
  Country: None (occurrence: None)
  Receive Date: 20111114
  Receipt Date: 20111110
  Transmission Date: 20120403
  Serious: No
  Sender: FDA-Public Use
  Company Number: US-PFIZER INC-2011186277

PATIENT
  Sex: Female

DRUGS (2)
  1. LIPITOR [Suspect]
     Dosage: UNK
     Route: 048
  2. ALTACE [Suspect]
     Dosage: UNK
     Route: 048

REACTIONS (3)
  - URTICARIA [None]
  - SWELLING [None]
  - SWELLING FACE [None]
